FAERS Safety Report 16195219 (Version 1)
Quarter: 2019Q2

REPORT INFORMATION
  Report Type: Spontaneous
  Country: US (occurrence: US)
  Receive Date: 20190415
  Receipt Date: 20190415
  Transmission Date: 20190711
  Serious: No
  Sender: FDA-Public Use
  Company Number: US-TEVA-2019-US-1038727

PATIENT
  Sex: Male
  Weight: 72 kg

DRUGS (3)
  1. CLONAZEPAM ACTAVIS [Suspect]
     Active Substance: CLONAZEPAM
     Dates: start: 201811
  2. CLONAZEPAM SOLCO [Suspect]
     Active Substance: CLONAZEPAM
     Route: 065
  3. CLONAZEPAM ACCORD [Suspect]
     Active Substance: CLONAZEPAM
     Route: 065

REACTIONS (6)
  - Asthenia [Unknown]
  - Abdominal discomfort [Unknown]
  - Drug ineffective [Unknown]
  - Diarrhoea [Unknown]
  - Product substitution issue [Unknown]
  - Weight decreased [Unknown]

NARRATIVE: CASE EVENT DATE: 201811
